FAERS Safety Report 15241329 (Version 2)
Quarter: 2025Q3

REPORT INFORMATION
  Report Type: Report from Study
  Country: EU (occurrence: EU)
  Receive Date: 20180805
  Receipt Date: 20250708
  Transmission Date: 20251021
  Serious: Yes (Other)
  Sender: AUROBINDO
  Company Number: EU-AUROBINDO-AUR-APL-2018-039076

PATIENT
  Age: 33 Year
  Sex: Female

DRUGS (4)
  1. LISINOPRIL [Suspect]
     Active Substance: LISINOPRIL
     Indication: Product used for unknown indication
     Route: 065
  2. DEQUALINIUM [Suspect]
     Active Substance: DEQUALINIUM
     Indication: Product used for unknown indication
     Route: 065
  3. OPIPRAMOL [Suspect]
     Active Substance: OPIPRAMOL
     Indication: Product used for unknown indication
     Route: 065
  4. NYSTATIN [Suspect]
     Active Substance: NYSTATIN
     Indication: Product used for unknown indication
     Route: 065

REACTIONS (2)
  - Multiple cardiac defects [Unknown]
  - Exposure during pregnancy [Unknown]
